FAERS Safety Report 8439433-5 (Version None)
Quarter: 2012Q2

REPORT INFORMATION
  Report Type: 
  Country: None (occurrence: None)
  Receive Date: 20120615
  Receipt Date: 20120608
  Transmission Date: 20120825
  Serious: Yes (Hospitalization)
  Sender: FDA-Public Use
  Company Number: FR-PFIZER INC-2012137804

PATIENT
  Age: 72 Year
  Sex: Female

DRUGS (3)
  1. SUTENT [Suspect]
     Indication: METASTASES TO CENTRAL NERVOUS SYSTEM
     Dosage: UNK
     Dates: start: 20090224, end: 20090323
  2. SUTENT [Suspect]
     Indication: RENAL CELL CARCINOMA
     Dosage: UNK
     Dates: start: 20090113
  3. SUTENT [Suspect]
     Indication: METASTASES TO LUNG

REACTIONS (1)
  - GENERAL PHYSICAL HEALTH DETERIORATION [None]
